FAERS Safety Report 16065729 (Version 1)
Quarter: 2019Q1

REPORT INFORMATION
  Report Type: Spontaneous
  Country: US (occurrence: US)
  Receive Date: 20190313
  Receipt Date: 20190313
  Transmission Date: 20190418
  Serious: Yes (Other)
  Sender: FDA-Public Use
  Company Number: US-ASTRAZENECA-2019SE38308

PATIENT
  Sex: Male
  Weight: 96.2 kg

DRUGS (29)
  1. TRAMADOL. [Concomitant]
     Active Substance: TRAMADOL
  2. METOPROLOL. [Concomitant]
     Active Substance: METOPROLOL
  3. NIASPAN [Concomitant]
     Active Substance: NIACIN
  4. PANTOPRAZOLE [Suspect]
     Active Substance: PANTOPRAZOLE
     Indication: GASTROOESOPHAGEAL REFLUX DISEASE
     Route: 065
     Dates: start: 2008
  5. IMODIUM [Concomitant]
     Active Substance: LOPERAMIDE HYDROCHLORIDE
  6. RANITIDINE. [Concomitant]
     Active Substance: RANITIDINE
  7. ZOLPIDEM [Concomitant]
     Active Substance: ZOLPIDEM\ZOLPIDEM TARTRATE
  8. LOVASTATIN. [Concomitant]
     Active Substance: LOVASTATIN
  9. NEXIUM [Suspect]
     Active Substance: ESOMEPRAZOLE MAGNESIUM
     Indication: GASTROOESOPHAGEAL REFLUX DISEASE
     Dosage: GENERIC
     Route: 048
     Dates: start: 2015
  10. LISINOPRIL. [Concomitant]
     Active Substance: LISINOPRIL
  11. LYRICA [Concomitant]
     Active Substance: PREGABALIN
  12. CLARITIN [Concomitant]
     Active Substance: LORATADINE
  13. METFORMIN [Concomitant]
     Active Substance: METFORMIN HYDROCHLORIDE
  14. CYMBALTA [Concomitant]
     Active Substance: DULOXETINE HYDROCHLORIDE
  15. ASPIRIN. [Concomitant]
     Active Substance: ASPIRIN
  16. AZITHROMYCIN ANHYDROUS. [Concomitant]
     Active Substance: AZITHROMYCIN ANHYDROUS
  17. NEXIUM [Suspect]
     Active Substance: ESOMEPRAZOLE MAGNESIUM
     Indication: GASTROOESOPHAGEAL REFLUX DISEASE
     Route: 048
     Dates: start: 2001, end: 2004
  18. PROTONIX [Suspect]
     Active Substance: PANTOPRAZOLE SODIUM
     Indication: GASTROOESOPHAGEAL REFLUX DISEASE
     Route: 065
     Dates: start: 2004, end: 2008
  19. FENOFIBRATE. [Concomitant]
     Active Substance: FENOFIBRATE
  20. AMOX [Concomitant]
     Active Substance: UNSPECIFIED INGREDIENT
  21. PROTONIX [Suspect]
     Active Substance: PANTOPRAZOLE SODIUM
     Indication: GASTROOESOPHAGEAL REFLUX DISEASE
     Route: 065
     Dates: start: 2015, end: 2016
  22. REMERON [Concomitant]
     Active Substance: MIRTAZAPINE
  23. ZOLPIDEM [Concomitant]
     Active Substance: ZOLPIDEM\ZOLPIDEM TARTRATE
  24. GABAPENTIN. [Concomitant]
     Active Substance: GABAPENTIN
  25. GLUCOTROL [Concomitant]
     Active Substance: GLIPIZIDE
  26. GLIPIZIDE. [Concomitant]
     Active Substance: GLIPIZIDE
  27. ALLOPURINOL. [Concomitant]
     Active Substance: ALLOPURINOL
  28. NAPROXEN. [Concomitant]
     Active Substance: NAPROXEN
  29. TERBINAFINE. [Concomitant]
     Active Substance: TERBINAFINE

REACTIONS (2)
  - Chronic kidney disease [Not Recovered/Not Resolved]
  - Acute kidney injury [Not Recovered/Not Resolved]
